FAERS Safety Report 23474234 (Version 1)
Quarter: 2024Q1

REPORT INFORMATION
  Report Type: Spontaneous
  Country: GB (occurrence: GB)
  Receive Date: 20240204
  Receipt Date: 20240204
  Transmission Date: 20240410
  Serious: Yes (Other)
  Sender: FDA-Public Use
  Company Number: GB-EXELIXIS-CABO-23060000

PATIENT
  Age: 67 Year
  Sex: Female

DRUGS (6)
  1. CABOMETYX [Suspect]
     Active Substance: CABOZANTINIB S-MALATE
     Indication: Clear cell renal cell carcinoma
     Dosage: 60 MG, QD
     Dates: start: 20210325, end: 202206
  2. CABOMETYX [Suspect]
     Active Substance: CABOZANTINIB S-MALATE
     Indication: Clear cell renal cell carcinoma
  3. CABOMETYX [Suspect]
     Active Substance: CABOZANTINIB S-MALATE
     Indication: Metastases to retroperitoneum
  4. AXITINIB [Suspect]
     Active Substance: AXITINIB
     Indication: Clear cell renal cell carcinoma
     Dosage: 5 MG, BID
     Dates: start: 20220609
  5. AXITINIB [Suspect]
     Active Substance: AXITINIB
     Indication: Metastases to lung
  6. AXITINIB [Suspect]
     Active Substance: AXITINIB
     Indication: Metastases to retroperitoneum

REACTIONS (5)
  - Anaemia [Recovering/Resolving]
  - Malignant neoplasm progression [Unknown]
  - Metastases to stomach [Unknown]
  - Metastases to uterus [Unknown]
  - Metastases to peritoneum [Unknown]

NARRATIVE: CASE EVENT DATE: 20220606
